FAERS Safety Report 20263285 (Version 4)
Quarter: 2022Q4

REPORT INFORMATION
  Report Type: Report from Study
  Country: BR (occurrence: BR)
  Receive Date: 20211231
  Receipt Date: 20221109
  Transmission Date: 20230113
  Serious: Yes (Hospitalization, Other)
  Sender: FDA-Public Use
  Company Number: BR-UCBSA-2021060861

PATIENT
  Age: 49 Year
  Sex: Female
  Weight: 60 kg

DRUGS (12)
  1. CERTOLIZUMAB PEGOL [Suspect]
     Active Substance: CERTOLIZUMAB PEGOL
     Indication: Ankylosing spondylitis
     Dosage: 200 MILLIGRAM, EV 15 DAYS
     Route: 058
     Dates: start: 202003, end: 202203
  2. DEPAKOTE [Concomitant]
     Active Substance: DIVALPROEX SODIUM
     Indication: Affective disorder
     Dosage: 500 MILLIGRAM, ONCE DAILY (QD)
     Route: 048
     Dates: start: 2019
  3. DULOXETINE [Concomitant]
     Active Substance: DULOXETINE
     Indication: Depression
     Dosage: 30 GRAM, ONCE A NIGHT
     Route: 048
     Dates: start: 2019
  4. PREGABALIN [Concomitant]
     Active Substance: PREGABALIN
     Indication: Fibromyalgia
     Dosage: 75 MILLIGRAM, ONCE A NIGHT
     Route: 048
     Dates: start: 2019
  5. OLANZAPINE [Concomitant]
     Active Substance: OLANZAPINE
     Indication: Feeling of relaxation
     Dosage: 2.5 MILLIGRAM, ONCE A NIGHT
     Route: 048
     Dates: start: 202112
  6. DIPIRONA [METAMIZOLE SODIUM] [Concomitant]
     Indication: Pain
  7. DIPIRONA [METAMIZOLE SODIUM] [Concomitant]
     Indication: Pyrexia
  8. ACETAMINOPHEN [Concomitant]
     Active Substance: ACETAMINOPHEN
     Indication: Pain
  9. ACETAMINOPHEN [Concomitant]
     Active Substance: ACETAMINOPHEN
     Indication: Pyrexia
  10. TRAZODONE HYDROCHLORIDE [Concomitant]
     Active Substance: TRAZODONE HYDROCHLORIDE
     Indication: Fibromyalgia
  11. ALPRAZOLAM [Concomitant]
     Active Substance: ALPRAZOLAM
     Indication: Product used for unknown indication
  12. CANNABIDIOL [Concomitant]
     Active Substance: CANNABIDIOL
     Indication: Fibromyalgia

REACTIONS (4)
  - Pneumonia streptococcal [Recovered/Resolved]
  - Tinea pedis [Recovered/Resolved]
  - Blister [Recovered/Resolved]
  - Back pain [Recovering/Resolving]

NARRATIVE: CASE EVENT DATE: 20201201
